FAERS Safety Report 13109210 (Version 2)
Quarter: 2017Q2

REPORT INFORMATION
  Report Type: Spontaneous
  Country: US (occurrence: US)
  Receive Date: 20170112
  Receipt Date: 20170616
  Transmission Date: 20170830
  Serious: Yes (Other)
  Sender: FDA-Public Use
  Company Number: US-PFIZER INC-2017011876

PATIENT
  Age: 49 Year
  Sex: Female

DRUGS (9)
  1. INDOMETHACIN. [Suspect]
     Active Substance: INDOMETHACIN
     Indication: RHEUMATOID ARTHRITIS
     Dosage: 75 MG, 4X/DAY (EACH FOR AT LEAST 1 MONTH)
  2. MECLOFENAMATE SODIUM. [Suspect]
     Active Substance: MECLOFENAMATE SODIUM
     Indication: RHEUMATOID ARTHRITIS
     Dosage: 100 MG, 3X/DAY (FOR 16 MONTHS)
  3. DICLOFENAC SODIUM. [Suspect]
     Active Substance: DICLOFENAC SODIUM
     Indication: RHEUMATOID ARTHRITIS
     Dosage: 75 MG, DAILY (FOR 15 MONTHS)
  4. NAPROXEN. [Suspect]
     Active Substance: NAPROXEN
     Indication: RHEUMATOID ARTHRITIS
     Dosage: 500 MG, 2X/DAY (EACH FOR AT LEAST 1 MONTH)
  5. IRON [Concomitant]
     Active Substance: IRON
     Dosage: UNK
     Route: 048
  6. FENOPROFEN CALCIUM. [Suspect]
     Active Substance: FENOPROFEN CALCIUM
     Indication: RHEUMATOID ARTHRITIS
     Dosage: 600 MG, 3X/DAY (EACH FOR AT LEAST 1 MONTH)
  7. SULINDAC. [Suspect]
     Active Substance: SULINDAC
     Indication: RHEUMATOID ARTHRITIS
     Dosage: 200 MG, 2X/DAY (EACH FOR AT LEAST 1 MONTH)
  8. PIROXICAM. [Suspect]
     Active Substance: PIROXICAM
     Indication: RHEUMATOID ARTHRITIS
     Dosage: 20 MG, 4X/DAY (EACH FOR AT LEAST 1 MONTH)
  9. INSULIN [Concomitant]
     Active Substance: INSULIN NOS
     Dosage: UNK

REACTIONS (1)
  - Intestinal diaphragm disease [Unknown]
